FAERS Safety Report 5022913-2 (Version None)
Quarter: 2006Q2

REPORT INFORMATION
  Report Type: 
  Country: None (occurrence: None)
  Receive Date: 20060426
  Receipt Date: 20060309
  Transmission Date: 20061013
  Serious: Yes (Other)
  Sender: FDA-Public Use
  Company Number: 2006035580

PATIENT
  Age: 47 Year

DRUGS (11)
  1. LYRICA [Suspect]
     Indication: MIGRAINE
     Dosage: (BID INTERVAL: EVERY DAY)
     Dates: start: 20051001, end: 20060305
  2. TOPAMAX [Suspect]
     Indication: MIGRAINE
     Dosage: (25 MG)
     Dates: start: 20060306, end: 20060308
  3. SEROQUEL [Concomitant]
  4. ABILIFY [Concomitant]
  5. EFFEXOR XR [Concomitant]
  6. KLONOPIN [Concomitant]
  7. MIRALAX [Concomitant]
  8. REGLAN [Concomitant]
  9. VERAPAMIL - SLOW RELEASE (VERAPAMIL HYDROCHLORIDE) [Concomitant]
  10. WELLBUTRIN [Concomitant]
  11. ZOMIG [Concomitant]

REACTIONS (4)
  - BLOOD PRESSURE INCREASED [None]
  - DIZZINESS [None]
  - MIGRAINE [None]
  - WEIGHT INCREASED [None]
